FAERS Safety Report 6467224-3 (Version None)
Quarter: 2009Q4

REPORT INFORMATION
  Report Type: 
  Country: None (occurrence: None)
  Receive Date: 20091202
  Receipt Date: 20091119
  Transmission Date: 20100525
  Serious: Yes (Other)
  Sender: FDA-Public Use
  Company Number: US-BRISTOL-MYERS SQUIBB COMPANY-14832760

PATIENT
  Age: 50 Year
  Sex: Male

DRUGS (8)
  1. ONGLYZA [Suspect]
     Indication: DIABETES MELLITUS
     Route: 048
     Dates: start: 20090828
  2. ACTOS [Concomitant]
  3. GLIPIZIDE [Concomitant]
  4. DILTIAZEM HCL [Concomitant]
  5. BENAZEPRIL HYDROCHLORIDE [Concomitant]
  6. ASPIRIN [Concomitant]
  7. NASONEX [Concomitant]
  8. CRESTOR [Concomitant]

REACTIONS (2)
  - HALLUCINATION [None]
  - PARANOIA [None]
